FAERS Safety Report 7226643-8 (Version None)
Quarter: 2011Q1

REPORT INFORMATION
  Report Type: 
  Country: None (occurrence: None)
  Receive Date: 20110107
  Receipt Date: 20110107
  Transmission Date: 20110831
  Serious: Yes (Hospitalization)
  Sender: FDA-Public Use
  Company Number: None

PATIENT
  Sex: Female
  Weight: 81.81 kg

DRUGS (3)
  1. TAXOL [Suspect]
     Dosage: 252 MG
  2. NEULASTA [Suspect]
     Dosage: 6 MG
  3. IFOSFAMIDE [Suspect]
     Dosage: 9 G

REACTIONS (12)
  - GLYCOSYLATED HAEMOGLOBIN INCREASED [None]
  - BLOOD ALBUMIN DECREASED [None]
  - THIRST [None]
  - BLOOD POTASSIUM DECREASED [None]
  - BLOOD CREATININE INCREASED [None]
  - BLOOD GLUCOSE INCREASED [None]
  - POLYURIA [None]
  - VISION BLURRED [None]
  - BLOOD MAGNESIUM DECREASED [None]
  - POLYDIPSIA [None]
  - BLOOD PHOSPHORUS DECREASED [None]
  - BLOOD CALCIUM DECREASED [None]
